FAERS Safety Report 22808561 (Version 3)
Quarter: 2024Q3

REPORT INFORMATION
  Report Type: Spontaneous
  Country: JP (occurrence: JP)
  Receive Date: 20230810
  Receipt Date: 20240716
  Transmission Date: 20241016
  Serious: Yes (Hospitalization, Other)
  Sender: SANOFI AVENTIS
  Company Number: JP-SA-2023SA240492

PATIENT
  Age: 85 Year
  Sex: Female

DRUGS (15)
  1. FUROSEMIDE [Interacting]
     Active Substance: FUROSEMIDE
     Indication: Oedema peripheral
     Dosage: 40 MG, QD
     Route: 065
  2. FAMOTIDINE [Interacting]
     Active Substance: FAMOTIDINE
     Indication: Product used for unknown indication
     Dosage: 40 MG, QD
     Route: 048
  3. SITAGLIPTIN [Interacting]
     Active Substance: SITAGLIPTIN
     Indication: Product used for unknown indication
     Dosage: 50 MG, QD
     Route: 048
  4. ATORVASTATIN [Interacting]
     Active Substance: ATORVASTATIN
     Indication: Product used for unknown indication
     Dosage: 10 MG, QD
     Route: 048
  5. ZOLPIDEM TARTRATE [Interacting]
     Active Substance: ZOLPIDEM TARTRATE
     Indication: Product used for unknown indication
     Dosage: 5 MG
     Route: 048
  6. CELECOXIB [Interacting]
     Active Substance: CELECOXIB
     Indication: Product used for unknown indication
     Dosage: 200 MG, QD
     Route: 048
  7. HYDROCHLOROTHIAZIDE\LOSARTAN POTASSIUM [Interacting]
     Active Substance: HYDROCHLOROTHIAZIDE\LOSARTAN POTASSIUM
     Indication: Product used for unknown indication
     Dosage: LOSARTAN (50 MG)/HYDROCHLOROTHIAZIDE (12.5 MG) COMBINATION (1 TABLET/DAY)
     Route: 048
  8. EZETIMIBE [Interacting]
     Active Substance: EZETIMIBE
     Indication: Product used for unknown indication
     Dosage: 10 MG, QD
     Route: 048
  9. CALCIUM ASPARTATE [Interacting]
     Active Substance: CALCIUM ASPARTATE
     Indication: Product used for unknown indication
     Dosage: 400 MG, QD
     Route: 048
  10. ELDECALCITOL [Interacting]
     Active Substance: ELDECALCITOL
     Indication: Product used for unknown indication
     Dosage: 0.75 UG, QD
     Route: 048
  11. REBAMIPIDE [Interacting]
     Active Substance: REBAMIPIDE
     Indication: Product used for unknown indication
     Dosage: 200 MG, QD
     Route: 048
  12. BENSERAZIDE\LEVODOPA [Interacting]
     Active Substance: BENSERAZIDE\LEVODOPA
     Indication: Product used for unknown indication
     Dosage: (2 TABLETS/DAY)
     Route: 048
  13. PIRENZEPINE [Interacting]
     Active Substance: PIRENZEPINE
     Indication: Product used for unknown indication
     Dosage: 50 MG, QD
     Route: 048
  14. ICOSAPENT ETHYL [Interacting]
     Active Substance: ICOSAPENT ETHYL
     Indication: Product used for unknown indication
     Dosage: 900 MG, QD
     Route: 048
  15. ORYCTOLAGUS CUNICULUS SKIN [Concomitant]
     Active Substance: ORYCTOLAGUS CUNICULUS SKIN
     Dosage: 16 U, QD
     Route: 048

REACTIONS (22)
  - Milk-alkali syndrome [Recovering/Resolving]
  - Drug interaction [Recovering/Resolving]
  - Chest discomfort [Recovering/Resolving]
  - Malaise [Recovering/Resolving]
  - Gastric ulcer [Recovering/Resolving]
  - Dry mouth [Recovering/Resolving]
  - Calculus urinary [Recovering/Resolving]
  - Hydronephrosis [Recovering/Resolving]
  - Hydroureter [Recovering/Resolving]
  - Hypercalcaemia [Recovered/Resolved]
  - Hypophosphataemia [Recovered/Resolved]
  - Hypokalaemia [Recovered/Resolved]
  - Hypomagnesaemia [Recovered/Resolved]
  - Renal disorder [Recovering/Resolving]
  - Metabolic alkalosis [Recovered/Resolved]
  - Hypochloraemia [Recovered/Resolved]
  - Hypercalciuria [Recovered/Resolved]
  - Alkalinuria [Recovered/Resolved]
  - Alkalosis [Recovered/Resolved]
  - Gastric ulcer haemorrhage [Recovering/Resolving]
  - Ureterolithiasis [Recovering/Resolving]
  - Anaemia [Unknown]
